FAERS Safety Report 6766671-X (Version None)
Quarter: 2010Q2

REPORT INFORMATION
  Report Type: 
  Country: None (occurrence: None)
  Receive Date: 20100611
  Receipt Date: 20100430
  Transmission Date: 20101027
  Serious: Yes (Death, Hospitalization, Other)
  Sender: FDA-Public Use
  Company Number: US-BAXTER-2009BH018287

PATIENT
  Age: 67 Year
  Sex: Female

DRUGS (17)
  1. HEPARIN SODIUM [Suspect]
     Indication: HAEMODIALYSIS
     Route: 065
     Dates: start: 20070901
  2. HEPARIN SODIUM [Suspect]
     Indication: SURGERY
     Route: 065
     Dates: start: 20070901
  3. HEPARIN SODIUM [Suspect]
     Route: 042
     Dates: start: 20071020, end: 20071112
  4. HEPARIN SODIUM [Suspect]
     Route: 042
     Dates: start: 20071020, end: 20071112
  5. HEPARIN SODIUM [Suspect]
     Route: 058
     Dates: start: 20071020, end: 20071112
  6. HEPARIN SODIUM [Suspect]
     Route: 058
     Dates: start: 20071020, end: 20071112
  7. HEPARIN SODIUM [Suspect]
     Route: 042
     Dates: start: 20071031, end: 20071031
  8. HEPARIN SODIUM [Suspect]
     Route: 042
     Dates: start: 20071031, end: 20071031
  9. HEPARIN SODIUM [Suspect]
     Route: 058
     Dates: start: 20071031, end: 20071031
  10. HEPARIN SODIUM [Suspect]
     Route: 058
     Dates: start: 20071031, end: 20071031
  11. VITAMINS [Concomitant]
     Indication: DRUG USE FOR UNKNOWN INDICATION
     Route: 065
  12. ALTACE [Concomitant]
     Indication: DRUG USE FOR UNKNOWN INDICATION
     Route: 065
  13. BUMEX [Concomitant]
     Indication: DRUG USE FOR UNKNOWN INDICATION
     Route: 065
  14. PERCOCET [Concomitant]
     Indication: DRUG USE FOR UNKNOWN INDICATION
     Route: 065
  15. CARTIA                                  /USA/ [Concomitant]
     Indication: DRUG USE FOR UNKNOWN INDICATION
     Route: 065
  16. DIGOXIN [Concomitant]
     Indication: DRUG USE FOR UNKNOWN INDICATION
     Route: 065
  17. DEXAMETHASONE [Concomitant]
     Indication: DRUG USE FOR UNKNOWN INDICATION
     Route: 065

REACTIONS (18)
  - ARRHYTHMIA [None]
  - AZOTAEMIA [None]
  - BLOOD PRESSURE FLUCTUATION [None]
  - CARDIAC FAILURE CONGESTIVE [None]
  - CARDIAC VALVE DISEASE [None]
  - CHEST DISCOMFORT [None]
  - CHEST PAIN [None]
  - HEPARIN-INDUCED THROMBOCYTOPENIA [None]
  - HYPERCOAGULATION [None]
  - HYPOTENSION [None]
  - INTRACARDIAC THROMBUS [None]
  - METASTATIC NEOPLASM [None]
  - NAUSEA [None]
  - PULMONARY EMBOLISM [None]
  - RENAL FAILURE [None]
  - THROMBOSIS IN DEVICE [None]
  - VISION BLURRED [None]
  - VOMITING [None]
